FAERS Safety Report 16756676 (Version 1)
Quarter: 2019Q3

REPORT INFORMATION
  Report Type: Spontaneous
  Country: GB (occurrence: GB)
  Receive Date: 20190829
  Receipt Date: 20190829
  Transmission Date: 20191005
  Serious: Yes (Disabling)
  Sender: FDA-Public Use
  Company Number: GB-TEVA-2019-GB-1098000

PATIENT
  Age: 32 Year
  Sex: Female
  Weight: 100 kg

DRUGS (1)
  1. SUMATRIPTAN. [Suspect]
     Active Substance: SUMATRIPTAN
     Indication: MIGRAINE WITH AURA
     Dosage: MAX 2 IN 24 HOURS
     Route: 048
     Dates: start: 20190706

REACTIONS (8)
  - Ocular discomfort [Not Recovered/Not Resolved]
  - Head discomfort [Not Recovered/Not Resolved]
  - Dizziness [Not Recovered/Not Resolved]
  - Acute sinusitis [Not Recovered/Not Resolved]
  - Parosmia [Not Recovered/Not Resolved]
  - Somnolence [Unknown]
  - Constipation [Not Recovered/Not Resolved]
  - Dry mouth [Not Recovered/Not Resolved]

NARRATIVE: CASE EVENT DATE: 20190706
